FAERS Safety Report 6649149-3 (Version None)
Quarter: 2010Q1

REPORT INFORMATION
  Report Type: 
  Country: None (occurrence: None)
  Receive Date: 20100324
  Receipt Date: 20100315
  Transmission Date: 20100710
  Serious: Yes (Other)
  Sender: FDA-Public Use
  Company Number: A0839931A

PATIENT
  Age: 52 Year
  Sex: Female

DRUGS (2)
  1. TYKERB [Suspect]
     Indication: DRUG USE FOR UNKNOWN INDICATION
     Dosage: 750MG PER DAY
     Route: 048
     Dates: start: 20100109, end: 20100209
  2. SODIUM PHOSPHATES [Suspect]

REACTIONS (6)
  - BRONCHITIS [None]
  - DIARRHOEA [None]
  - PYREXIA [None]
  - SKIN ATROPHY [None]
  - SKIN EROSION [None]
  - SKIN LACERATION [None]
